FAERS Safety Report 7525929-7 (Version None)
Quarter: 2011Q2

REPORT INFORMATION
  Report Type: 
  Country: None (occurrence: None)
  Receive Date: 20110603
  Receipt Date: 20110603
  Transmission Date: 20111010
  Serious: Yes (Other)
  Sender: FDA-Public Use
  Company Number: None

PATIENT
  Sex: Female
  Weight: 101.1521 kg

DRUGS (5)
  1. LEVOTHYROXINE SODIUM [Suspect]
     Indication: HYPOTHYROIDISM
     Dosage: 175 MCG ONE PO QD ; 150 MCG ONE PO QD
     Route: 048
     Dates: start: 20100601
  2. LEVOTHYROXINE SODIUM [Suspect]
     Indication: HYPOTHYROIDISM
     Dosage: 175 MCG ONE PO QD ; 150 MCG ONE PO QD
     Route: 048
     Dates: start: 20100801
  3. IMITREX [Concomitant]
  4. MINOCYCLINE HCL [Concomitant]
  5. METFORMIN HCL [Concomitant]

REACTIONS (4)
  - FATIGUE [None]
  - PRODUCT SUBSTITUTION ISSUE [None]
  - BLOOD THYROID STIMULATING HORMONE DECREASED [None]
  - BLOOD THYROID STIMULATING HORMONE INCREASED [None]
